FAERS Safety Report 5927403-8 (Version None)
Quarter: 2008Q4

REPORT INFORMATION
  Report Type: 
  Country: None (occurrence: None)
  Receive Date: 20081022
  Receipt Date: 20081022
  Transmission Date: 20090506
  Serious: Yes (Other)
  Sender: FDA-Public Use
  Company Number: None

PATIENT

DRUGS (1)
  1. OXYBUTYNIN CHLORIDE [Suspect]
     Indication: POLLAKIURIA
     Dosage: 1 PER DAY ORAL
     Route: 048
     Dates: start: 20080922, end: 20081001

REACTIONS (3)
  - IMPAIRED DRIVING ABILITY [None]
  - NIGHT BLINDNESS [None]
  - VISION BLURRED [None]
